FAERS Safety Report 9060596 (Version 2)
Quarter: 2013Q1

REPORT INFORMATION
  Report Type: Spontaneous
  Country: FR (occurrence: FR)
  Receive Date: 20130212
  Receipt Date: 20130224
  Transmission Date: 20140127
  Serious: Yes (Hospitalization)
  Sender: FDA-Public Use
  Company Number: FR-VERTEX PHARMACEUTICALS INC.-2013-001906

PATIENT
  Age: 69 None
  Sex: Female

DRUGS (3)
  1. INCIVO [Suspect]
     Indication: HEPATITIS C
     Route: 048
     Dates: start: 20121208, end: 20121219
  2. PEG INTERFERON [Concomitant]
     Indication: HEPATITIS C
     Route: 058
     Dates: start: 20121208, end: 20121219
  3. RIBAVIRINE [Concomitant]
     Indication: HEPATITIS C
     Route: 048
     Dates: start: 20121208, end: 20121219

REACTIONS (5)
  - Eczema [Recovered/Resolved]
  - Erythema [Recovered/Resolved]
  - Pyrexia [Recovered/Resolved]
  - Toxic skin eruption [Recovered/Resolved]
  - Oral disorder [Recovered/Resolved]
